FAERS Safety Report 13292871 (Version 2)
Quarter: 2019Q1

REPORT INFORMATION
  Report Type: Spontaneous
  Country: FR (occurrence: FR)
  Receive Date: 20170303
  Receipt Date: 20190325
  Transmission Date: 20190417
  Serious: Yes (Hospitalization, Other)
  Sender: FDA-Public Use
  Company Number: FR-SA-2017SA035348

PATIENT
  Age: 54 Year
  Sex: Female
  Weight: 56 kg

DRUGS (22)
  1. ZYVOXID [Concomitant]
     Active Substance: LINEZOLID
     Dosage: UNK
  2. PARACETAMOL [Concomitant]
     Active Substance: ACETAMINOPHEN
     Indication: PAIN
     Dosage: 1 G
     Route: 048
  3. NUTRYELT [Concomitant]
     Active Substance: IRON\MINERALS\POTASSIUM IOD\SODIUM FLUORIDE\SODIUM MOLYBDATE\SODIUM SELENITE\ZINC
  4. VENLAFAXINE HYDROCHLORIDE. [Concomitant]
     Active Substance: VENLAFAXINE HYDROCHLORIDE
     Indication: MAJOR DEPRESSION
     Dosage: 37.5 MG IN THE MORNING AND 75 MG IN THE EVENING
     Route: 048
  5. PHOCYTAN [Concomitant]
     Active Substance: .ALPHA.-GLUCOSE-1-PHOSPHATE
     Dosage: UNK
  6. PHLOROGLUCINOL [Concomitant]
     Active Substance: PHLOROGLUCINOL
     Dosage: UNK
  7. AMIKACIN SULFATE [AMIKACIN] [Concomitant]
     Indication: BACTERAEMIA
     Dosage: 15 MG/KG, QD
     Route: 042
     Dates: start: 20170127, end: 20170130
  8. STILNOX [Suspect]
     Active Substance: ZOLPIDEM TARTRATE
     Indication: INSOMNIA
     Dosage: 1 DF,QD IN EVENING
     Route: 048
  9. AMOXICILLIN/CLAVULANIC ACID [Suspect]
     Active Substance: AMOXICILLIN\CLAVULANIC ACID
     Indication: BACTERAEMIA
     Dosage: 1 DF,Q8H
     Route: 042
     Dates: start: 20170131, end: 201702
  10. DAFALGAN [Suspect]
     Active Substance: ACETAMINOPHEN
     Indication: PAIN
     Dosage: 1 G,PRN
     Route: 048
  11. OXYNORM [Concomitant]
     Active Substance: OXYCODONE HYDROCHLORIDE
     Indication: PAIN
     Dosage: UNK UNK,UNK
     Route: 048
     Dates: start: 20170127
  12. RIFADINE [RIFAMPICIN] [Concomitant]
     Active Substance: RIFAMPIN
     Dosage: UNK
     Dates: start: 201609
  13. DAPTOMYCIN. [Concomitant]
     Active Substance: DAPTOMYCIN
     Dosage: UNK
  14. MABELIO [Concomitant]
     Active Substance: CEFTOBIPROLE
     Indication: BACTERAEMIA
     Dosage: 500 MG,Q8H
     Route: 042
     Dates: start: 20170127, end: 20170130
  15. ACUPAN [Concomitant]
     Active Substance: NEFOPAM HYDROCHLORIDE
     Indication: PAIN
     Dosage: UNK UNK,UNK
     Route: 042
     Dates: start: 20170127
  16. OLIMEL [Concomitant]
     Active Substance: AMINO ACIDS\DEXTROSE\SOYBEAN OIL
     Dosage: UNK
  17. LEVOFLOXACIN. [Concomitant]
     Active Substance: LEVOFLOXACIN
     Dosage: UNK
     Dates: start: 201609
  18. TRAMADOL HYDROCHLORIDE. [Suspect]
     Active Substance: TRAMADOL HYDROCHLORIDE
     Indication: PAIN
     Dosage: 1000 MG LP IN THE MORNING AND 20 MG IN THE MORNING
     Route: 048
  19. CUBICIN [Suspect]
     Active Substance: DAPTOMYCIN
     Indication: BACTERAEMIA
     Dosage: 1 DF,QD
     Route: 042
     Dates: start: 20170131
  20. CERNEVIT [Concomitant]
     Active Substance: VITAMINS
     Dosage: UNK
  21. PANTOPRAZOLE [Concomitant]
     Active Substance: PANTOPRAZOLE
     Indication: GASTROOESOPHAGEAL REFLUX DISEASE
     Dosage: 40 MG,QD IN EVENING
     Route: 048
  22. LOVENOX [Concomitant]
     Active Substance: ENOXAPARIN SODIUM
     Indication: THROMBOSIS PROPHYLAXIS
     Dosage: .4 ML,QD
     Route: 058

REACTIONS (1)
  - Thrombocytopenia [Recovered/Resolved]

NARRATIVE: CASE EVENT DATE: 20170214
